FAERS Safety Report 4531122-2 (Version None)
Quarter: 2004Q4

REPORT INFORMATION
  Report Type: 
  Country: None (occurrence: None)
  Receive Date: 20041130
  Receipt Date: 20040824
  Transmission Date: 20050328
  Serious: Yes (Other)
  Sender: FDA-Public Use
  Company Number: WAES 0408USA02223

PATIENT
  Age: 60 Year
  Sex: Male

DRUGS (2)
  1. FOSAMAX [Suspect]
     Indication: OSTEITIS DEFORMANS
     Dosage: PO
     Route: 048
     Dates: start: 20020201
  2. LIPITOR [Concomitant]

REACTIONS (1)
  - STEVENS-JOHNSON SYNDROME [None]
